FAERS Safety Report 21280559 (Version 2)
Quarter: 2022Q3

REPORT INFORMATION
  Report Type: Spontaneous
  Country: US (occurrence: US)
  Receive Date: 20220901
  Receipt Date: 20220926
  Transmission Date: 20221026
  Serious: Yes (Hospitalization, Other)
  Sender: FDA-Public Use
  Company Number: US-GLAXOSMITHKLINE-US2022AMR124101

PATIENT

DRUGS (1)
  1. ZEJULA [Suspect]
     Active Substance: NIRAPARIB
     Indication: Ovarian cancer
     Dosage: 300 MG, QD
     Dates: start: 20220727

REACTIONS (6)
  - Renal failure [Unknown]
  - Asthenia [Unknown]
  - Feeding disorder [Unknown]
  - Oral pain [Unknown]
  - Laboratory test abnormal [Unknown]
  - Dehydration [Unknown]
